FAERS Safety Report 11531277 (Version 3)
Quarter: 2016Q2

REPORT INFORMATION
  Report Type: Spontaneous
  Country: IT (occurrence: IT)
  Receive Date: 20150921
  Receipt Date: 20160421
  Transmission Date: 20160815
  Serious: Yes (Life-Threatening)
  Sender: FDA-Public Use
  Company Number: IT-JNJFOC-20150914522

PATIENT
  Age: 78 Year
  Sex: Male
  Weight: 100 kg

DRUGS (3)
  1. XARELTO [Suspect]
     Active Substance: RIVAROXABAN
     Indication: CEREBROVASCULAR ACCIDENT PROPHYLAXIS
     Route: 048
     Dates: start: 20141020, end: 20150708
  2. CARDIOASPIRIN [Concomitant]
     Active Substance: ASPIRIN
     Indication: ANTIBIOTIC PROPHYLAXIS
     Route: 048
     Dates: start: 19950101, end: 20150914
  3. XARELTO [Suspect]
     Active Substance: RIVAROXABAN
     Indication: ATRIAL FIBRILLATION
     Route: 048
     Dates: start: 20141020, end: 20150708

REACTIONS (1)
  - Anaemia [Recovered/Resolved]

NARRATIVE: CASE EVENT DATE: 20150328
